FAERS Safety Report 9563833 (Version 1)
Quarter: 2013Q3

REPORT INFORMATION
  Report Type: Spontaneous
  Country: US (occurrence: None)
  Receive Date: 20130926
  Receipt Date: 20130926
  Transmission Date: 20140515
  Serious: No
  Sender: FDA-Public Use
  Company Number: None

PATIENT
  Age: 23 Year
  Sex: Female
  Weight: 58.97 kg

DRUGS (1)
  1. PARAGARD [Suspect]

REACTIONS (3)
  - Vaginitis bacterial [None]
  - Vulvovaginal mycotic infection [None]
  - Medical device complication [None]
